FAERS Safety Report 23197031 (Version 10)
Quarter: 2024Q3

REPORT INFORMATION
  Report Type: Spontaneous
  Country: IN (occurrence: IN)
  Receive Date: 20231117
  Receipt Date: 20240926
  Transmission Date: 20241017
  Serious: Yes (Other)
  Sender: PFIZER
  Company Number: IN-PFIZER INC-2021176193

PATIENT
  Age: 67 Year
  Sex: Female
  Weight: 75.3 kg

DRUGS (14)
  1. PALBOCICLIB [Suspect]
     Active Substance: PALBOCICLIB
     Indication: Breast cancer metastatic
     Dosage: 125 MG, CYCLIC (ONCE DAILY FOR 21 DAYS, THEN OFF 7 DAYS)
     Route: 048
     Dates: start: 20210104
  2. PALBOCICLIB [Suspect]
     Active Substance: PALBOCICLIB
     Indication: Hormone receptor positive breast cancer
     Dosage: 125 MG, CYCLIC (ONCE DAILY FOR 21 DAYS, THEN OFF 7 DAYS)
     Route: 048
     Dates: start: 20210128
  3. PALBOCICLIB [Suspect]
     Active Substance: PALBOCICLIB
     Dosage: 100 MG, 1X/DAY
     Route: 048
  4. PALBOCICLIB [Suspect]
     Active Substance: PALBOCICLIB
     Dosage: 100 MG (FOR 21 DAYS, THEN STOP FOR 7 DAYS)
     Route: 048
  5. ANASTROZOLE [Concomitant]
     Active Substance: ANASTROZOLE
     Dosage: 1 DF, 1X/DAY
  6. CALCIUM CARBONATE\CHOLECALCIFEROL [Concomitant]
     Active Substance: CALCIUM CARBONATE\CHOLECALCIFEROL
     Dosage: 1 DF, 1X/DAY
  7. CALCIUM CARBONATE\CHOLECALCIFEROL [Concomitant]
     Active Substance: CALCIUM CARBONATE\CHOLECALCIFEROL
     Dosage: 500 MG, 2X/DAY
  8. OSIMERTINIB [Concomitant]
     Active Substance: OSIMERTINIB
     Dosage: 40 MG, 1X/DAY
  9. FULVESTRANT [Concomitant]
     Active Substance: FULVESTRANT
     Dosage: 500 MG DEEP IM; EVERY 28 DAYS
     Route: 030
  10. FOLVITE [Concomitant]
     Active Substance: FOLIC ACID
     Dosage: 5 MG, 1X/DAY
  11. HEMFER-XT [Concomitant]
     Dosage: 1 DF, 2X/DAY
  12. ALLEVYN [Concomitant]
     Dosage: TO BE APPLIED EVERY ALTERNATE DAY
  13. ALLEVYN [Concomitant]
     Dosage: TO BE APPLIED EVERY DAY
  14. NAPROSYN [Concomitant]
     Active Substance: NAPROXEN
     Dosage: 250 MG TWICE DAILY FOR 5 DAYS

REACTIONS (14)
  - Second primary malignancy [Unknown]
  - Non-small cell lung cancer [Unknown]
  - Body mass index increased [Unknown]
  - Red blood cell count decreased [Unknown]
  - Blood pressure systolic increased [Unknown]
  - Pulmonary granuloma [Unknown]
  - Hepatic steatosis [Unknown]
  - Cholelithiasis [Unknown]
  - Gallbladder disorder [Unknown]
  - Neoplasm progression [Unknown]
  - Chest pain [Unknown]
  - Heart rate increased [Unknown]
  - Weight decreased [Unknown]
  - Oxygen saturation decreased [Unknown]

NARRATIVE: CASE EVENT DATE: 20220104
